FAERS Safety Report 24876498 (Version 1)
Quarter: 2025Q1

REPORT INFORMATION
  Report Type: Spontaneous
  Country: CN (occurrence: CN)
  Receive Date: 20250123
  Receipt Date: 20250123
  Transmission Date: 20250408
  Serious: Yes (Hospitalization)
  Sender: BEIGENE
  Company Number: CN-BEIGENE-BGN-2025-000854

PATIENT
  Age: 68 Year
  Weight: 70 kg

DRUGS (6)
  1. TISLELIZUMAB [Suspect]
     Active Substance: TISLELIZUMAB
     Indication: Gastric cancer
     Dosage: 200 MILLIGRAM, Q3WK
  2. TISLELIZUMAB [Suspect]
     Active Substance: TISLELIZUMAB
     Dosage: 200 MILLIGRAM, Q3WK
     Route: 041
  3. TISLELIZUMAB [Suspect]
     Active Substance: TISLELIZUMAB
     Dosage: 200 MILLIGRAM, Q3WK
     Route: 041
  4. TISLELIZUMAB [Suspect]
     Active Substance: TISLELIZUMAB
     Dosage: 200 MILLIGRAM, Q3WK
  5. COIX LACRYMA-JOBI VAR. MA-YUEN SEED [Concomitant]
     Active Substance: COIX LACRYMA-JOBI VAR. MA-YUEN SEED
     Indication: Gastric cancer
     Dosage: 2 GRAM, QD
     Route: 041
  6. COIX LACRYMA-JOBI VAR. MA-YUEN SEED [Concomitant]
     Active Substance: COIX LACRYMA-JOBI VAR. MA-YUEN SEED
     Dosage: 2 GRAM, QD

REACTIONS (4)
  - Skin wound [Not Recovered/Not Resolved]
  - Pruritus [Recovering/Resolving]
  - Asthenia [Recovering/Resolving]
  - Decreased appetite [Recovering/Resolving]
